FAERS Safety Report 7712910-8 (Version None)
Quarter: 2011Q3

REPORT INFORMATION
  Report Type: 
  Country: None (occurrence: None)
  Receive Date: 20110826
  Receipt Date: 20110815
  Transmission Date: 20111222
  Serious: Yes (Other)
  Sender: FDA-Public Use
  Company Number: PHHY2010DE88847

PATIENT
  Sex: Male
  Weight: 82 kg

DRUGS (1)
  1. CLOZAPINE [Suspect]
     Indication: PSYCHOTIC DISORDER
     Dosage: 300 MG, QD
     Route: 048

REACTIONS (3)
  - DEPRESSION [None]
  - LYMPHOPENIA [None]
  - LYMPHOCYTE COUNT DECREASED [None]
